FAERS Safety Report 24004821 (Version 3)
Quarter: 2024Q3

REPORT INFORMATION
  Report Type: Report from Study
  Country: ZA (occurrence: ZA)
  Receive Date: 20240624
  Receipt Date: 20240807
  Transmission Date: 20241016
  Serious: Yes (Life-Threatening, Other)
  Sender: NOVARTIS
  Company Number: ZA-002147023-NVSC2024ZA107991

PATIENT
  Age: 36 Year
  Sex: Female

DRUGS (8)
  1. OFATUMUMAB [Suspect]
     Active Substance: OFATUMUMAB
     Indication: Relapsing-remitting multiple sclerosis
     Dosage: 20 MG, QW
     Route: 058
     Dates: start: 20240520
  2. OFATUMUMAB [Suspect]
     Active Substance: OFATUMUMAB
     Dosage: 20 MG, QW
     Route: 058
     Dates: start: 20240527
  3. OFATUMUMAB [Suspect]
     Active Substance: OFATUMUMAB
     Dosage: 20 MG, QW
     Route: 058
     Dates: start: 20240603
  4. OFATUMUMAB [Suspect]
     Active Substance: OFATUMUMAB
     Dosage: UNK (4 LOADING DOSES)
     Route: 065
     Dates: start: 20240617
  5. OFATUMUMAB [Suspect]
     Active Substance: OFATUMUMAB
     Dosage: 20 MG, QMO
     Route: 058
     Dates: start: 20240715
  6. OFATUMUMAB [Suspect]
     Active Substance: OFATUMUMAB
     Dosage: 20 MG, QMO
     Route: 058
  7. FERRIMED [Concomitant]
     Indication: Product used for unknown indication
     Dosage: UNK
     Route: 065
  8. VITAMIN B12 [Concomitant]
     Active Substance: CYANOCOBALAMIN
     Indication: Product used for unknown indication
     Dosage: UNK
     Route: 065

REACTIONS (21)
  - Feeling abnormal [Unknown]
  - Multiple sclerosis [Not Recovered/Not Resolved]
  - Feeling of body temperature change [Not Recovered/Not Resolved]
  - Influenza like illness [Not Recovered/Not Resolved]
  - Headache [Recovering/Resolving]
  - Fatigue [Not Recovered/Not Resolved]
  - Asthenia [Recovering/Resolving]
  - Tremor [Not Recovered/Not Resolved]
  - Palpitations [Recovering/Resolving]
  - Nasal dryness [Not Recovered/Not Resolved]
  - Paraesthesia [Not Recovered/Not Resolved]
  - Feeling cold [Not Recovered/Not Resolved]
  - Chest pain [Not Recovered/Not Resolved]
  - Pain [Unknown]
  - Chills [Recovering/Resolving]
  - Illness [Unknown]
  - Malaise [Unknown]
  - Influenza [Recovering/Resolving]
  - Oropharyngeal pain [Recovering/Resolving]
  - Hyperhidrosis [Recovering/Resolving]
  - Affective disorder [Unknown]

NARRATIVE: CASE EVENT DATE: 20240520
